FAERS Safety Report 24258042 (Version 1)
Quarter: 2024Q3

REPORT INFORMATION
  Report Type: Spontaneous
  Country: CN (occurrence: CN)
  Receive Date: 20240828
  Receipt Date: 20240828
  Transmission Date: 20241016
  Serious: Yes (Other)
  Sender: BIOCON
  Company Number: CN-BIOCON BIOLOGICS LIMITED-BBL2024006277

PATIENT

DRUGS (4)
  1. BEVACIZUMAB [Suspect]
     Active Substance: BEVACIZUMAB
     Indication: Non-small cell lung cancer stage IV
     Dosage: UNK
     Route: 065
  2. PEMETREXED [Suspect]
     Active Substance: PEMETREXED
     Indication: Non-small cell lung cancer stage IV
     Dosage: UNK
     Route: 065
  3. AUMOLERTINIB [Suspect]
     Active Substance: AUMOLERTINIB
     Indication: Non-small cell lung cancer stage IV
     Dosage: UNK
     Route: 065
  4. AUMOLERTINIB [Suspect]
     Active Substance: AUMOLERTINIB
     Dosage: 110 MG, QD
     Route: 048

REACTIONS (4)
  - Hepatotoxicity [Unknown]
  - Dysgeusia [Unknown]
  - Epistaxis [Unknown]
  - Hypertension [Unknown]
